FAERS Safety Report 18029074 (Version 1)
Quarter: 2020Q3

REPORT INFORMATION
  Report Type: Other
  Country: IT (occurrence: IT)
  Receive Date: 20200716
  Receipt Date: 20200716
  Transmission Date: 20201103
  Serious: Yes (Hospitalization)
  Sender: FDA-Public Use
  Company Number: IT-ROCHE-2638763

PATIENT
  Age: 52 Year
  Sex: Female
  Weight: 92 kg

DRUGS (16)
  1. PARACETAMOL [Concomitant]
     Active Substance: ACETAMINOPHEN
     Dosage: ONGOING = CHECKED
     Dates: start: 20171013
  2. BISOPROLOLO [Concomitant]
     Active Substance: BISOPROLOL FUMARATE
     Indication: EJECTION FRACTION DECREASED
     Dosage: ONGOING = CHECKED
     Dates: start: 20190919
  3. DEPAKIN [Concomitant]
     Active Substance: VALPROATE SODIUM
     Indication: DISORIENTATION
     Dosage: ONGOING = CHECKED
     Dates: start: 20191015
  4. PERTUZUMAB. [Suspect]
     Active Substance: PERTUZUMAB
     Indication: BREAST CANCER
     Dosage: FREQUENCY: OTHER MOST RECENT DOSE PRIOR TO THE EVENT: 20171102
     Route: 042
     Dates: start: 20171012, end: 20171012
  5. DECAPEPTYL [Concomitant]
     Dosage: ONGOING = CHECKED
     Dates: start: 20190411
  6. RAMIPRIL. [Concomitant]
     Active Substance: RAMIPRIL
     Indication: EJECTION FRACTION DECREASED
     Dosage: ONGOING = CHECKED
     Dates: start: 20190919
  7. DEPAKIN [Concomitant]
     Active Substance: VALPROATE SODIUM
     Indication: EPILEPSY
     Dosage: ONGOING = CHECKED
     Dates: start: 20200502
  8. SOLDESAM [Concomitant]
     Active Substance: DEXAMETHASONE
     Dosage: ONGOING = CHECKED
     Dates: start: 20200109
  9. TAVOR (LORAZEPAM) [Concomitant]
     Active Substance: LORAZEPAM
     Dosage: ONGOING = CHECKED
     Dates: start: 20180419
  10. TAXOTERE [Suspect]
     Active Substance: DOCETAXEL
     Indication: BREAST CANCER
     Dosage: Q3W ? EVERY 3 WEEKS
     Route: 042
     Dates: start: 20171013, end: 20180125
  11. TRASTUZUMAB. [Suspect]
     Active Substance: TRASTUZUMAB
     Indication: BREAST CANCER
     Dosage: FREQUENCY: OTHER MOST RECENT DOSE PRIOR TO THE EVENT: 20180308
     Route: 041
     Dates: start: 20171013, end: 20171013
  12. FEMARA [Suspect]
     Active Substance: LETROZOLE
     Indication: BREAST CANCER
     Dosage: O.D. ? ONCE DAILY
     Route: 048
     Dates: start: 20180215
  13. ZOLEDRONIC ACID [Concomitant]
     Active Substance: ZOLEDRONIC ACID
     Dosage: ONGOING = CHECKED
     Dates: start: 20190228
  14. TRIMETON [Concomitant]
     Active Substance: CHLORPHENIRAMINE MALEATE
     Dosage: ONGOING = CHECKED
     Dates: start: 20171012
  15. PANTORC [Concomitant]
     Active Substance: PANTOPRAZOLE SODIUM
     Indication: DISORIENTATION
     Dosage: ONGOING = CHECKED
     Dates: start: 20191015
  16. REMIFEMIN [Concomitant]
     Active Substance: BLACK COHOSH
     Dosage: ONGOING = CHECKED
     Dates: start: 20181004

REACTIONS (1)
  - Cellulitis [Recovered/Resolved]

NARRATIVE: CASE EVENT DATE: 20200615
